FAERS Safety Report 4674258-8 (Version None)
Quarter: 2005Q2

REPORT INFORMATION
  Report Type: 
  Country: None (occurrence: None)
  Receive Date: 20050526
  Receipt Date: 20050519
  Transmission Date: 20051028
  Serious: Yes (Other)
  Sender: FDA-Public Use
  Company Number: ZA-BRISTOL-MYERS SQUIBB COMPANY-12974408

PATIENT
  Age: 31 Year
  Sex: Female
  Weight: 85 kg

DRUGS (4)
  1. ZERIT [Suspect]
     Indication: HIV INFECTION
     Route: 048
     Dates: start: 20040922, end: 20050314
  2. LAMIVUDINE [Suspect]
     Indication: HIV INFECTION
     Route: 048
     Dates: start: 20040922, end: 20050314
  3. NEVIRAPINE [Concomitant]
     Indication: HIV INFECTION
     Route: 048
     Dates: start: 20040922, end: 20050314
  4. BACTRIM [Concomitant]
     Indication: PROPHYLAXIS
     Route: 048
     Dates: start: 20040922, end: 20050314

REACTIONS (4)
  - BLOOD LACTIC ACID INCREASED [None]
  - EPIGASTRIC DISCOMFORT [None]
  - OEDEMA [None]
  - VOMITING [None]
